FAERS Safety Report 23932890 (Version 1)
Quarter: 2024Q2

REPORT INFORMATION
  Report Type: Spontaneous
  Country: US (occurrence: None)
  Receive Date: 20240601
  Receipt Date: 20240601
  Transmission Date: 20240716
  Serious: No
  Sender: FDA-Public Use
  Company Number: None

PATIENT
  Age: 62 Year
  Sex: Male
  Weight: 94 kg

DRUGS (2)
  1. CYTARABINE [Suspect]
     Active Substance: CYTARABINE
     Dates: end: 20240410
  2. DAUNORUBICIN [Suspect]
     Active Substance: DAUNORUBICIN
     Dates: end: 20240406

REACTIONS (4)
  - Hypoxia [None]
  - Pulmonary oedema [None]
  - Respiratory failure [None]
  - Transfusion-related circulatory overload [None]

NARRATIVE: CASE EVENT DATE: 20240411
